FAERS Safety Report 9508116 (Version 2)
Quarter: 2013Q3

REPORT INFORMATION
  Report Type: Report from Study
  Country: DE (occurrence: DE)
  Receive Date: 20130909
  Receipt Date: 20130909
  Transmission Date: 20140515
  Serious: Yes (Hospitalization)
  Sender: FDA-Public Use
  Company Number: DE-ABBOTT-13P-062-1111746-00

PATIENT
  Age: 53 Year
  Sex: Female
  Weight: 110 kg

DRUGS (15)
  1. HUMIRA [Suspect]
     Indication: PSORIASIS
     Route: 058
     Dates: start: 201111, end: 2013
  2. METHOTREXATE [Suspect]
     Indication: PSORIATIC ARTHROPATHY
     Route: 048
     Dates: start: 200909, end: 20130402
  3. METHOTREXATE [Suspect]
     Indication: PSORIASIS
  4. ACETYL-SALICYLIC ACID [Concomitant]
     Indication: PRODUCT USED FOR UNKNOWN INDICATION
     Route: 048
  5. EUTHYROX [Concomitant]
     Indication: THYROID DISORDER
     Route: 048
  6. HYDROMOPHONE [Concomitant]
     Indication: PRODUCT USED FOR UNKNOWN INDICATION
     Dosage: 4 MG/8 MG
  7. MELOXICAM [Concomitant]
     Indication: PRODUCT USED FOR UNKNOWN INDICATION
     Dosage: 15 MG (0.5 - 1 DAY)
  8. FOLCUR [Concomitant]
     Indication: PRODUCT USED FOR UNKNOWN INDICATION
  9. METOPROLOLE [Concomitant]
     Indication: PRODUCT USED FOR UNKNOWN INDICATION
  10. METOPROLOLE [Concomitant]
     Indication: PRODUCT USED FOR UNKNOWN INDICATION
  11. METHOTREXATE (MTX) [Concomitant]
     Indication: PSORIASIS
     Dosage: 1.5 PER DAY
  12. PANTOPRAZOLE [Concomitant]
     Indication: PRODUCT USED FOR UNKNOWN INDICATION
  13. PREDNISOLONE [Concomitant]
     Indication: PRODUCT USED FOR UNKNOWN INDICATION
  14. NALOXONE/TILIDINE [Concomitant]
     Indication: PRODUCT USED FOR UNKNOWN INDICATION
  15. VALSARTAN [Concomitant]
     Indication: PRODUCT USED FOR UNKNOWN INDICATION
     Dosage: 160/12.5 MG

REACTIONS (14)
  - Arteriosclerosis coronary artery [Unknown]
  - Ischaemia [Unknown]
  - Aortic dissection [Unknown]
  - Chest discomfort [Recovered/Resolved]
  - Embolism [Recovered/Resolved]
  - Respiratory tract infection [Recovered/Resolved]
  - Hypertensive heart disease [Not Recovered/Not Resolved]
  - Pyrexia [Recovered/Resolved]
  - Chest pain [Recovered/Resolved]
  - Sinus tachycardia [Unknown]
  - Abdominal pain upper [Unknown]
  - Nausea [Unknown]
  - Sciatica [Not Recovered/Not Resolved]
  - Pleurisy [Recovered/Resolved]
